FAERS Safety Report 8849389 (Version 1)
Quarter: 2012Q4

REPORT INFORMATION
  Report Type: Spontaneous
  Country: US (occurrence: None)
  Receive Date: 20121018
  Receipt Date: 20121018
  Transmission Date: 20130627
  Serious: Yes (Other)
  Sender: FDA-Public Use
  Company Number: None

PATIENT
  Age: 34 Year
  Weight: 72.58 kg

DRUGS (1)
  1. ALIVE! NATURES WAY MULTIVITAMIN [Suspect]
     Indication: NUTRITIONAL SUPPLEMENT
     Dosage: 2 Tablets Daily PO
     Route: 048
     Dates: start: 20121001, end: 20121008

REACTIONS (1)
  - Depression [None]
